FAERS Safety Report 16960472 (Version 2)
Quarter: 2020Q4

REPORT INFORMATION
  Report Type: Spontaneous
  Country: US (occurrence: US)
  Receive Date: 20191025
  Receipt Date: 20201012
  Transmission Date: 20210113
  Serious: Yes (Other)
  Sender: FDA-Public Use
  Company Number: US-SUN PHARMACEUTICAL INDUSTRIES LTD-2019R1-225095

PATIENT
  Age: 2 Year
  Sex: Male

DRUGS (1)
  1. DOXYCYCLINE. [Suspect]
     Active Substance: DOXYCYCLINE
     Indication: VENOLYMPHATIC MALFORMATION
     Dosage: UNK
     Route: 065

REACTIONS (4)
  - Dysphagia [Recovering/Resolving]
  - Laryngeal disorder [Recovered/Resolved]
  - Nerve injury [Unknown]
  - Aspiration [Unknown]
